FAERS Safety Report 6699367-3 (Version None)
Quarter: 2010Q2

REPORT INFORMATION
  Report Type: 
  Country: None (occurrence: None)
  Receive Date: 20100426
  Receipt Date: 20100412
  Transmission Date: 20101027
  Serious: Yes (Hospitalization)
  Sender: FDA-Public Use
  Company Number: 1-22225097

PATIENT
  Age: 66 Year
  Sex: Female

DRUGS (7)
  1. CLONIDINE HCL [Suspect]
     Indication: HYPERTENSION
     Dosage: ORAL, 0.1 MG 3 TIMES DAILY PRE-ADMIT, THEN 0.2 MG 3 TIMES DAILY POST- ADMIT DAYS 1 THROUGH 6, THEN 0
     Route: 048
  2. ATORVASTATIN [Suspect]
     Dosage: 80 MG ONCE DAILY, ORAL
     Route: 048
  3. MEMANTINE [Concomitant]
  4. DONEPEZIL HCL [Concomitant]
  5. METOPROLOL [Concomitant]
  6. AMLODIPINE [Concomitant]
  7. DULOXETINE HYDROCHLORIDE [Suspect]
     Indication: DEPRESSION
     Dosage: 60 MG, ONCE DAILY ORAL -
     Route: 048

REACTIONS (4)
  - ACUTE MYOCARDIAL INFARCTION [None]
  - ASTHENIA [None]
  - DYSPNOEA [None]
  - PYREXIA [None]
